FAERS Safety Report 7989323-7 (Version None)
Quarter: 2011Q4

REPORT INFORMATION
  Report Type: 
  Country: None (occurrence: None)
  Receive Date: 20111219
  Receipt Date: 20111209
  Transmission Date: 20120403
  Serious: Yes (Other)
  Sender: FDA-Public Use
  Company Number: JP-ASTRAZENECA-2011SE75751

PATIENT
  Age: 27787 Day
  Sex: Male

DRUGS (9)
  1. RABEPRAZOLE SODIUM [Concomitant]
     Indication: GASTRITIS PROPHYLAXIS
     Route: 048
  2. AMOBAN [Concomitant]
     Indication: INSOMNIA
     Route: 048
  3. ASPIRIN [Concomitant]
     Route: 048
  4. PRAVASTATIN SODIUM [Concomitant]
     Indication: HYPERLIPIDAEMIA
     Route: 048
  5. PRUSENNID [Concomitant]
     Indication: CONSTIPATION
     Route: 048
  6. ENALAPRIL MALEATE [Concomitant]
     Indication: CARDIOVASCULAR EVENT PROPHYLAXIS
     Route: 048
  7. PLAVIX [Suspect]
     Indication: CORONARY ARTERY DISEASE
     Route: 048
     Dates: start: 20111125
  8. SIGMART [Concomitant]
     Indication: ARTERIOSPASM CORONARY
     Route: 048
  9. PACLITAXEL [Concomitant]

REACTIONS (1)
  - BLADDER CANCER [None]
